FAERS Safety Report 10240686 (Version 1)
Quarter: 2014Q1

REPORT INFORMATION
  Report Type: Spontaneous
  Country: US (occurrence: None)
  Receive Date: 20140306
  Receipt Date: 20140306
  Transmission Date: 20141002
  Serious: Yes (Other)
  Sender: FDA-Public Use
  Company Number: 163-21880-13034836

PATIENT
  Age: 65 Year
  Sex: Female

DRUGS (27)
  1. REVLIMID (LENALIDOMIDE) (10 MILLIGRAM, CAPSULES) [Suspect]
     Indication: PLASMA CELL MYELOMA
     Dosage: 10 MG, 21 IN 21 D, PO  02/18/2012 - UNKNOWN THERAPY DATES
     Route: 048
     Dates: start: 20120215
  2. ALLERGY SHOTS (ALLERGENS NOS) (UNKNOWN) [Concomitant]
  3. PERCOCET (OXYCOCET) (UNKNOWN) [Concomitant]
  4. ALLEGRA (FEXOFENADINE HYDROCHLORIDE) (UNKNOWN) [Concomitant]
  5. MULTIVITAMIN (MULTIVITAMINS) (TABLETS) [Concomitant]
  6. VITAMIN C (ASCORBIC ACID) (UNKNOWN) [Concomitant]
  7. VITAMIN D3 (COLECALCIFEROL) (CAPSULES) [Concomitant]
  8. VERAPAMIL (VERAPAMIL) (UNKNOWN) [Concomitant]
  9. PROZAC (FLUOXETINE HYDROCHLORIDE) (UNKNOWN) [Concomitant]
  10. CLONAZEPAM (CLONAZEPAM) (UNKNOWN) [Concomitant]
  11. KLOR CON (POTASSIUM CHLORIDE) (UNKNOWN) [Concomitant]
  12. FOXAMAX (ALENDRONATE SODIUM) (UNKNOWN) [Concomitant]
  13. SUDAFED (PSEUDOEPHEDRINE HYDROCHLORIDE) (UNKNOWN) [Concomitant]
  14. SALINE (SALINE MIXTURE) (SPRAY (NOT INHALATION) ) [Concomitant]
  15. PRILOSEC DR (OMEORAZOLE) (UNKNOWN) [Concomitant]
  16. FIORICET (AXOTAL (OLD FORM) (UNKNOWN) [Concomitant]
  17. ADVAIR DISKUS (SERETIDE MITE) (UNKNOWN) [Concomitant]
  18. VENTOLIN (SALBUTAMOL) (INHALANT) [Concomitant]
  19. OPTIVE (OPTIVE) (DROPS) [Concomitant]
  20. ASPIRIN (ACETYLSALICYLIC) (UNKNOWN) [Concomitant]
  21. DYAZIDE (DYAZIDE) (UNKNOWN) [Concomitant]
  22. VELCADE (BORTEZOMIB) (UNKNOWN) [Concomitant]
  23. DEXAMETHASONE (DEXAMETHASONE) (UNKNOWN) [Concomitant]
  24. OCEAN (OCEAN) (SPRAY (NOT INHALATION) ) [Concomitant]
  25. POTASSIUM CL (POTASSIUM CHLORIDE) (UNKNOWN) [Concomitant]
  26. TRIAMTERENE-HCTZ (DYAZIDE) (CAPSULES) [Concomitant]
  27. AFRIN (OXYMETAZOLINE HYDROCHLORIDE) (SPRAY (NOT INHALATION) [Concomitant]

REACTIONS (5)
  - Cataract [None]
  - White blood cell count decreased [None]
  - Fatigue [None]
  - Skin disorder [None]
  - Urinary tract infection [None]
